FAERS Safety Report 24241922 (Version 3)
Quarter: 2024Q4

REPORT INFORMATION
  Report Type: Spontaneous
  Country: US (occurrence: US)
  Receive Date: 20240823
  Receipt Date: 20241004
  Transmission Date: 20250114
  Serious: No
  Sender: GILEAD
  Company Number: US-GILEAD-2024-0685029

PATIENT

DRUGS (1)
  1. BIKTARVY [Suspect]
     Active Substance: BICTEGRAVIR SODIUM\EMTRICITABINE\TENOFOVIR ALAFENAMIDE FUMARATE
     Indication: Prophylaxis against HIV infection
     Dosage: UNK
     Route: 065

REACTIONS (3)
  - Product counterfeit [Unknown]
  - Product packaging issue [Unknown]
  - Off label use [Unknown]
